FAERS Safety Report 24961256 (Version 1)
Quarter: 2025Q1

REPORT INFORMATION
  Report Type: Other
  Country: GB (occurrence: GB)
  Receive Date: 20250212
  Receipt Date: 20250212
  Transmission Date: 20250409
  Serious: Yes (Hospitalization)
  Sender: ESJAY PHARMA
  Company Number: GB-ESJAY PHARMA-000140

PATIENT
  Age: 43 Year
  Sex: Male

DRUGS (1)
  1. SOTALOL [Suspect]
     Active Substance: SOTALOL
     Indication: Atrial fibrillation

REACTIONS (1)
  - Treatment noncompliance [Unknown]
